FAERS Safety Report 7980627-0 (Version None)
Quarter: 2011Q4

REPORT INFORMATION
  Report Type: 
  Country: None (occurrence: None)
  Receive Date: 20111214
  Receipt Date: 20111130
  Transmission Date: 20120403
  Serious: Yes (Hospitalization, Other)
  Sender: FDA-Public Use
  Company Number: AU-WATSON-2011-20491

PATIENT
  Age: 70 Year
  Sex: Male

DRUGS (1)
  1. VALPROATE SODIUM [Suspect]
     Indication: POST-TRAUMATIC EPILEPSY
     Dosage: 500 MG, DAILY
     Route: 065

REACTIONS (2)
  - PLEURAL EFFUSION [None]
  - NEUTROPHILIA [None]
